FAERS Safety Report 9853709 (Version 1)
Quarter: 2014Q1

REPORT INFORMATION
  Report Type: Spontaneous
  Country: US (occurrence: US)
  Receive Date: 20140129
  Receipt Date: 20140129
  Transmission Date: 20141002
  Serious: No
  Sender: FDA-Public Use
  Company Number: US-GLAXOSMITHKLINE-A1008200A

PATIENT
  Age: 52 Year
  Sex: Female

DRUGS (2)
  1. BUPROPION [Suspect]
     Dosage: 450MG PER DAY
     Route: 048
  2. WELLBUTRIN XL [Suspect]
     Indication: PRODUCT USED FOR UNKNOWN INDICATION
     Dosage: 450MG PER DAY
     Route: 048

REACTIONS (1)
  - Parosmia [Not Recovered/Not Resolved]
